FAERS Safety Report 5456784-7 (Version None)
Quarter: 2007Q3

REPORT INFORMATION
  Report Type: 
  Country: None (occurrence: None)
  Receive Date: 20070918
  Receipt Date: 20070910
  Transmission Date: 20080115
  Serious: Yes (Hospitalization, Disabling, Other)
  Sender: FDA-Public Use
  Company Number: US-PFIZER INC-2007075175

PATIENT
  Sex: Female

DRUGS (2)
  1. CELEBREX [Suspect]
     Indication: PAIN IN EXTREMITY
     Dates: start: 19990301, end: 20021201
  2. BEXTRA [Suspect]
     Indication: PAIN IN EXTREMITY
     Dates: start: 20020301, end: 20030101

REACTIONS (1)
  - CEREBROVASCULAR ACCIDENT [None]
